FAERS Safety Report 5673831-8 (Version None)
Quarter: 2008Q2

REPORT INFORMATION
  Report Type: 
  Country: None (occurrence: None)
  Receive Date: 20080226
  Receipt Date: 20070717
  Transmission Date: 20081010
  Serious: Yes (Other)
  Sender: FDA-Public Use
  Company Number: 507316

PATIENT
  Age: 24 Year
  Sex: Female

DRUGS (2)
  1. ACCUTANE [Suspect]
     Indication: ACNE CYSTIC
     Dosage: 20 MG 2 PER DAY ORAL
  2. ACCUTANE [Suspect]
     Indication: SCAR
     Dosage: 20 MG 2 PER DAY ORAL

REACTIONS (2)
  - ADVERSE EVENT [None]
  - DIABETES MELLITUS [None]
